FAERS Safety Report 4380768-3 (Version None)
Quarter: 2004Q2

REPORT INFORMATION
  Report Type: 
  Country: None (occurrence: None)
  Receive Date: 20040614
  Receipt Date: 20040528
  Transmission Date: 20050107
  Serious: Yes (Hospitalization)
  Sender: FDA-Public Use
  Company Number: TPA2004A00705

PATIENT
  Age: 58 Year
  Sex: Female
  Weight: 92.0802 kg

DRUGS (12)
  1. ACTOS [Suspect]
     Indication: DIABETES MELLITUS
     Dosage: 45 MG, 1 IN 1 D, PER ORAL
     Route: 048
  2. NEURONTIN [Concomitant]
  3. DETROL LA (TOLTERODINE L-TARTRATE) [Concomitant]
  4. PREDNISONE TAB [Concomitant]
  5. FERREX (POLYSACCHARIDE-IRON COMPLEX) [Concomitant]
  6. DIOVAN [Concomitant]
  7. PREVACID [Concomitant]
  8. LIPITOR [Concomitant]
  9. SYNTHROID [Concomitant]
  10. HUMULIN 70/30 [Concomitant]
  11. HUMULIN R [Concomitant]
  12. FORTEO [Concomitant]

REACTIONS (8)
  - ARTHRITIS [None]
  - BACK PAIN [None]
  - INFECTION [None]
  - MOBILITY DECREASED [None]
  - RENAL FAILURE [None]
  - THERMAL BURN [None]
  - URINARY INCONTINENCE [None]
  - WEIGHT INCREASED [None]
